FAERS Safety Report 18277544 (Version 1)
Quarter: 2020Q3

REPORT INFORMATION
  Report Type: Spontaneous
  Country: DE (occurrence: DE)
  Receive Date: 20200917
  Receipt Date: 20200917
  Transmission Date: 20201103
  Serious: Yes (Congenital Anomaly, Other)
  Sender: FDA-Public Use
  Company Number: DE-TEVA-2020-DE-1827677

PATIENT
  Age: 2 Year
  Sex: Female
  Weight: 3.33 kg

DRUGS (1)
  1. PREDNISOLON [Suspect]
     Active Substance: PREDNISOLONE
     Indication: ARTHRITIS
     Dosage: FROM PRECONCEPTUAL, STARTED WITH 70MG/D, DECREASING DOSAGE UNTIL WEEK 11+
     Route: 064
     Dates: start: 20170107, end: 20170325

REACTIONS (2)
  - Foetal exposure during pregnancy [Not Recovered/Not Resolved]
  - Proximal focal femoral deficiency [Not Recovered/Not Resolved]
